FAERS Safety Report 16634771 (Version 1)
Quarter: 2019Q3

REPORT INFORMATION
  Report Type: Spontaneous
  Country: DE (occurrence: DE)
  Receive Date: 20190726
  Receipt Date: 20190726
  Transmission Date: 20191004
  Serious: Yes (Hospitalization)
  Sender: FDA-Public Use
  Company Number: DE-TEVA-2019-DE-1083058

PATIENT
  Age: 40 Year
  Sex: Male
  Weight: 96 kg

DRUGS (7)
  1. INSULIN GLULISINE [Concomitant]
     Active Substance: INSULIN GLULISINE
     Dosage: AFTER BZ, SOLUTION FOR INJECTION/INFUSION
     Route: 058
  2. METFORMIN [Suspect]
     Active Substance: METFORMIN HYDROCHLORIDE
     Dosage: DISCONTINUED SINCE 13.11.2017, TABLETS
     Route: 048
  3. INSULIN GLARGINE [Concomitant]
     Active Substance: INSULIN GLARGINE
     Dosage: AFTER BZ, SOLUTION FOR INJECTION/INFUSION
     Route: 058
  4. OLANZAPIN [Concomitant]
     Active Substance: OLANZAPINE
     Dosage: 7.5 MG, 0-0-1-0, TABLETS
     Route: 048
  5. ESCITALOPRAM [Concomitant]
     Active Substance: ESCITALOPRAM OXALATE
     Dosage: 10 MG, 0-1-0-0, TABLETS
     Route: 048
  6. ALLOPURINOL. [Concomitant]
     Active Substance: ALLOPURINOL
     Dosage: 300 MG, 1-0-0-0, TABLETS
     Route: 048
  7. METOPROLOL. [Concomitant]
     Active Substance: METOPROLOL
     Dosage: 100 MG, 1-0-0-0, TABLETS
     Route: 048

REACTIONS (2)
  - Hyperglycaemia [Unknown]
  - Product administration error [Unknown]

NARRATIVE: CASE EVENT DATE: 20171113
